FAERS Safety Report 11603343 (Version 1)
Quarter: 2015Q4

REPORT INFORMATION
  Report Type: Spontaneous
  Country: US (occurrence: None)
  Receive Date: 20151005
  Receipt Date: 20151005
  Transmission Date: 20160304
  Serious: Yes (Hospitalization)
  Sender: FDA-Public Use
  Company Number: None

PATIENT
  Age: 70 Year
  Sex: Female
  Weight: 94.5 kg

DRUGS (2)
  1. METFORMIN HYDROCHLORIDE. [Suspect]
     Active Substance: METFORMIN HYDROCHLORIDE
     Dates: end: 20150519
  2. CARBOPLATIN. [Suspect]
     Active Substance: CARBOPLATIN
     Dates: end: 20150713

REACTIONS (9)
  - Asthenia [None]
  - Fatigue [None]
  - Neuropathy peripheral [None]
  - Dizziness [None]
  - Urosepsis [None]
  - Fall [None]
  - Candiduria [None]
  - Hydronephrosis [None]
  - Urinary tract infection enterococcal [None]

NARRATIVE: CASE EVENT DATE: 20150731
